FAERS Safety Report 21489846 (Version 1)
Quarter: 2022Q4

REPORT INFORMATION
  Report Type: Report from Study
  Country: US (occurrence: US)
  Receive Date: 20221021
  Receipt Date: 20221021
  Transmission Date: 20230113
  Serious: Yes (Death, Hospitalization, Other)
  Sender: FDA-Public Use
  Company Number: US-SUN PHARMACEUTICAL INDUSTRIES LTD-2022R1-359898

PATIENT
  Age: 66 Year
  Sex: Male

DRUGS (4)
  1. CARBOPLATIN [Suspect]
     Active Substance: CARBOPLATIN
     Indication: Bladder cancer
     Dosage: UNK
     Route: 065
  2. DOXORUBICIN [Suspect]
     Active Substance: DOXORUBICIN
     Indication: Bladder cancer
     Dosage: 1 CYCLE
     Route: 065
  3. GEMCITABINE [Suspect]
     Active Substance: GEMCITABINE
     Indication: Bladder cancer
     Dosage: 2 CYCLES
     Route: 065
  4. PACLITAXEL [Suspect]
     Active Substance: PACLITAXEL
     Indication: Bladder cancer
     Dosage: UNK
     Route: 065

REACTIONS (2)
  - Disease progression [Fatal]
  - Therapy partial responder [Unknown]
